FAERS Safety Report 24211010 (Version 1)
Quarter: 2024Q3

REPORT INFORMATION
  Report Type: Spontaneous
  Country: RU (occurrence: None)
  Receive Date: 20240814
  Receipt Date: 20240814
  Transmission Date: 20241017
  Serious: Yes (Hospitalization)
  Sender: ASTRAZENECA
  Company Number: 2024A180947

PATIENT
  Age: 75 Year
  Sex: Female
  Weight: 80 kg

DRUGS (12)
  1. BRILINTA [Suspect]
     Active Substance: TICAGRELOR
     Indication: Product used for unknown indication
     Route: 048
     Dates: start: 20240329, end: 20240410
  2. HOMEOPATHICS [Suspect]
     Active Substance: ARNICA MONTANA\CAUSTICUM\COMFREY ROOT\HOMEOPATHICS\LEDUM PALUSTRE TWIG\PSEUDOGNAPHALIUM OBTUSIFOLIUM
     Dates: start: 20240404, end: 20240408
  3. PLAVIX [Concomitant]
     Active Substance: CLOPIDOGREL BISULFATE
     Dosage: 15.0MG UNKNOWN
     Route: 048
     Dates: start: 202312
  4. PANCRELIPASE [Concomitant]
     Active Substance: PANCRELIPASE\PANCRELIPASE AMYLASE\PANCRELIPASE LIPASE\PANCRELIPASE PROTEASE
     Dosage: TEN THOUSANDS UNIT
     Route: 048
  5. LOSARTAN [Concomitant]
     Active Substance: LOSARTAN\LOSARTAN POTASSIUM
     Dosage: 50.0MG UNKNOWN
     Route: 048
  6. LOSARTAN [Concomitant]
     Active Substance: LOSARTAN\LOSARTAN POTASSIUM
     Dosage: 50.0MG UNKNOWN
     Route: 048
  7. ROSUVASTATIN [Concomitant]
     Active Substance: ROSUVASTATIN\ROSUVASTATIN CALCIUM
     Dosage: 10.0MG UNKNOWN
     Route: 048
  8. CAPOTEN [Concomitant]
     Active Substance: CAPTOPRIL
     Route: 048
     Dates: start: 20240329
  9. MEBEVERINE [Concomitant]
     Active Substance: MEBEVERINE
     Route: 048
     Dates: start: 202403, end: 202403
  10. INOSINE\NIACINAMIDE\RIBOFLAVIN\SUCCINIC ACID [Concomitant]
     Active Substance: INOSINE\NIACINAMIDE\RIBOFLAVIN\SUCCINIC ACID
     Route: 042
     Dates: start: 20240318, end: 20240318
  11. MYDOCALM-RICHTER [Concomitant]
     Route: 030
     Dates: start: 20240328, end: 20240329
  12. CEREBROLYSIN [Concomitant]
     Active Substance: CEREBROLYSIN
     Route: 030
     Dates: start: 20240328, end: 20240329

REACTIONS (1)
  - Hypersensitivity vasculitis [Not Recovered/Not Resolved]

NARRATIVE: CASE EVENT DATE: 20240404
